FAERS Safety Report 4679851-4 (Version None)
Quarter: 2005Q2

REPORT INFORMATION
  Report Type: 
  Country: None (occurrence: None)
  Receive Date: 20050602
  Receipt Date: 20050224
  Transmission Date: 20051028
  Serious: No
  Sender: FDA-Public Use
  Company Number: US-GLAXOSMITHKLINE-A0547138A

PATIENT
  Age: 43 Year
  Sex: Male

DRUGS (3)
  1. AUGMENTIN [Suspect]
     Indication: SINUSITIS
     Dosage: 1000MG TWICE PER DAY
     Route: 048
     Dates: start: 20050131
  2. SINGULAIR [Concomitant]
  3. ZYRTEC [Concomitant]

REACTIONS (1)
  - DRUG INEFFECTIVE [None]
